FAERS Safety Report 23759485 (Version 1)
Quarter: 2024Q2

REPORT INFORMATION
  Report Type: Spontaneous
  Country: US (occurrence: None)
  Receive Date: 20240418
  Receipt Date: 20240418
  Transmission Date: 20240715
  Serious: No
  Sender: FDA-Public Use
  Company Number: US-ROCHE-3431665

PATIENT
  Age: 63 Year
  Sex: Female

DRUGS (3)
  1. ESBRIET [Suspect]
     Active Substance: PIRFENIDONE
     Indication: Product used for unknown indication
     Route: 065
  2. OFEV [Suspect]
     Active Substance: NINTEDANIB
     Indication: Idiopathic pulmonary fibrosis
     Dosage: 150 MG, ONCE IN 12 HOUR
     Route: 048
     Dates: start: 202211
  3. OFEV [Suspect]
     Active Substance: NINTEDANIB
     Indication: Pulmonary fibrosis
     Dosage: 100 MG, ONCE IN 12 HOUR
     Route: 048

REACTIONS (4)
  - Nausea [Unknown]
  - Abdominal pain upper [Unknown]
  - Diarrhoea [Unknown]
  - Vomiting [Unknown]
